FAERS Safety Report 9407778 (Version 1)
Quarter: 2013Q3

REPORT INFORMATION
  Report Type: Spontaneous
  Country: US (occurrence: None)
  Receive Date: 20130717
  Receipt Date: 20130717
  Transmission Date: 20140515
  Serious: No
  Sender: FDA-Public Use
  Company Number: None

PATIENT
  Age: 63 Year
  Sex: Female

DRUGS (1)
  1. FORTEO [Suspect]
     Dates: start: 20130410

REACTIONS (8)
  - Peripheral coldness [None]
  - Joint range of motion decreased [None]
  - Fall [None]
  - Musculoskeletal pain [None]
  - Pain in extremity [None]
  - Hypoaesthesia [None]
  - Nerve injury [None]
  - Injury [None]
